FAERS Safety Report 6069148-2 (Version None)
Quarter: 2009Q1

REPORT INFORMATION
  Report Type: 
  Country: None (occurrence: None)
  Receive Date: 20090203
  Receipt Date: 20090123
  Transmission Date: 20090719
  Serious: Yes (Death, Hospitalization, Other)
  Sender: FDA-Public Use
  Company Number: ADE2009-0429

PATIENT
  Age: 80 Year
  Sex: Female

DRUGS (18)
  1. CEFTRIAXONE [Suspect]
     Indication: RESPIRATORY TRACT INFECTION
     Dosage: 2G - QD - IV
     Route: 042
     Dates: start: 20080925, end: 20080928
  2. CLARITHROMYCIN [Suspect]
     Indication: RESPIRATORY TRACT INFECTION
     Dosage: 500MG - QD - IV
     Route: 042
     Dates: start: 20080925, end: 20080928
  3. CLARITHROMYCIN [Suspect]
     Dosage: 500MG - QD - ORAL
     Route: 048
     Dates: start: 20080929, end: 20081005
  4. AMOXICILLIN + CLAVULANATE POTASSIUM [Suspect]
     Dosage: 625MG - TID - ORAL
     Route: 048
     Dates: start: 20080929, end: 20081005
  5. ADCAL-D3 [Concomitant]
  6. COMBIVENT [Concomitant]
  7. ENOXAPARIN SODIUM [Concomitant]
  8. FUROSEMIDE [Concomitant]
  9. GLICAZIDE [Concomitant]
  10. INSULIN [Concomitant]
  11. METFORMIN HCL [Concomitant]
  12. OMEPRAZOLE [Concomitant]
  13. OXYNORM [Concomitant]
  14. PREDNISOLONE [Concomitant]
  15. SALBUTAMOL [Concomitant]
  16. SERETIDE [Concomitant]
  17. TIOTROPIUM BROMIDE [Concomitant]
  18. METRONIDAZOLE [Concomitant]

REACTIONS (3)
  - CLOSTRIDIUM DIFFICILE COLITIS [None]
  - GENERAL PHYSICAL HEALTH DETERIORATION [None]
  - RENAL FAILURE ACUTE [None]
